FAERS Safety Report 24904234 (Version 1)
Quarter: 2025Q1

REPORT INFORMATION
  Report Type: Spontaneous
  Country: US (occurrence: US)
  Receive Date: 20250130
  Receipt Date: 20250130
  Transmission Date: 20250408
  Serious: Yes (Hospitalization)
  Sender: BRAEBURN PHARMACEUTICALS
  Company Number: US-BRAEBURN-US-BRA-25-000026

PATIENT
  Age: 37 Year
  Sex: Male

DRUGS (1)
  1. BRIXADI [Suspect]
     Active Substance: BUPRENORPHINE
     Indication: Drug dependence
     Dosage: 32 MILLIGRAM, WEEKLY
     Route: 058
     Dates: start: 202410

REACTIONS (1)
  - Stab wound [Recovering/Resolving]

NARRATIVE: CASE EVENT DATE: 20250102
